FAERS Safety Report 7459610-X (Version None)
Quarter: 2011Q2

REPORT INFORMATION
  Report Type: 
  Country: None (occurrence: None)
  Receive Date: 20110505
  Receipt Date: 20110425
  Transmission Date: 20111010
  Serious: Yes (Other)
  Sender: FDA-Public Use
  Company Number: PHHY2011IT35235

PATIENT
  Sex: Male

DRUGS (10)
  1. MACLADIN [Concomitant]
  2. LYRICA [Concomitant]
  3. FLUTAMIDE [Concomitant]
  4. ZOMETA [Suspect]
     Indication: METASTASES TO BONE
     Dosage: UNK
     Route: 042
     Dates: start: 20090504, end: 20100504
  5. INSULIN [Concomitant]
  6. XATRAL [Concomitant]
  7. LEVOXACIN [Concomitant]
  8. DELTACORTENE [Concomitant]
  9. TACHIPIRINA [Concomitant]
  10. OXYCONTIN [Concomitant]

REACTIONS (1)
  - OSTEONECROSIS OF JAW [None]
